FAERS Safety Report 4707441-3 (Version None)
Quarter: 2005Q3

REPORT INFORMATION
  Report Type: 
  Country: None (occurrence: None)
  Receive Date: 20050701
  Receipt Date: 20050530
  Transmission Date: 20060218
  Serious: Yes (Other)
  Sender: FDA-Public Use
  Company Number: 200504731

PATIENT
  Age: 41 Year
  Sex: Female
  Weight: 63 kg

DRUGS (3)
  1. BOTOX [Suspect]
     Indication: SKIN WRINKLING
     Dosage: 30 UNITS ONCE SC
     Route: 058
     Dates: start: 20040601
  2. BOTOX [Suspect]
     Indication: SKIN WRINKLING
     Dosage: 50 UNITS ONCE SC
     Route: 058
     Dates: start: 20031201, end: 20031201
  3. BOTOX [Suspect]
     Indication: SKIN WRINKLING

REACTIONS (5)
  - ANAPHYLACTIC SHOCK [None]
  - DIZZINESS [None]
  - HYPERSENSITIVITY [None]
  - HYPOAESTHESIA [None]
  - MALAISE [None]
